FAERS Safety Report 8545816-5 (Version None)
Quarter: 2012Q3

REPORT INFORMATION
  Report Type: 
  Country: None (occurrence: None)
  Receive Date: 20120727
  Receipt Date: 20120718
  Transmission Date: 20120928
  Serious: Yes (Hospitalization)
  Sender: FDA-Public Use
  Company Number: FR-FRI-1000036862

PATIENT
  Sex: Male
  Weight: 78 kg

DRUGS (4)
  1. ESCITALOPRAM [Suspect]
     Dosage: 15 MG
     Route: 048
     Dates: end: 20120509
  2. ESCITALOPRAM [Suspect]
     Indication: DEPRESSION
     Dosage: 10 MG
     Route: 048
     Dates: start: 20111024
  3. PLAVIX [Concomitant]
     Indication: ARTERITIS
     Dosage: 75 MG
     Route: 048
     Dates: start: 20010101
  4. OXAZEPAM [Concomitant]
     Indication: ANXIETY
     Dosage: 50 MG
     Route: 048
     Dates: start: 20101101, end: 20120509

REACTIONS (7)
  - LOGORRHOEA [None]
  - SUICIDAL IDEATION [None]
  - FLIGHT OF IDEAS [None]
  - DEPRESSED MOOD [None]
  - DEPERSONALISATION [None]
  - RESTLESSNESS [None]
  - TACHYPHRENIA [None]
